FAERS Safety Report 7463843-6 (Version None)
Quarter: 2011Q2

REPORT INFORMATION
  Report Type: 
  Country: None (occurrence: None)
  Receive Date: 20110506
  Receipt Date: 20110408
  Transmission Date: 20111010
  Serious: Yes (Death)
  Sender: FDA-Public Use
  Company Number: US-ASTRAZENECA-2011SE20150

PATIENT
  Age: 55 Year
  Sex: Female

DRUGS (3)
  1. SEROQUEL [Suspect]
     Indication: BIPOLAR I DISORDER
     Dosage: 200 MG ONE TABLET IN MORNING AND TWO AT NIGHT
     Route: 048
     Dates: start: 20100929
  2. LORAZEPAM [Concomitant]
  3. LEXAPRO [Concomitant]

REACTIONS (1)
  - CEREBROVASCULAR ACCIDENT [None]
